FAERS Safety Report 20771449 (Version 6)
Quarter: 2023Q1

REPORT INFORMATION
  Report Type: Report from Study
  Country: BE (occurrence: None)
  Receive Date: 20220429
  Receipt Date: 20230202
  Transmission Date: 20230417
  Serious: Yes (Hospitalization)
  Sender: FDA-Public Use
  Company Number: BE-ROCHE-3084673

PATIENT
  Age: 57 Year
  Sex: Female
  Weight: 111 kg

DRUGS (2)
  1. ENTRECTINIB [Suspect]
     Active Substance: ENTRECTINIB
     Indication: Breast cancer
     Dosage: DATE OF LAST DOSE PRIOR TO SAE: 21/APR/2022
     Route: 048
     Dates: start: 20220128
  2. LETROZOLE [Suspect]
     Active Substance: LETROZOLE
     Indication: Breast cancer
     Dosage: DATE OF LAST DOSE PRIOR TO SAE: 21/APR/2022
     Route: 048
     Dates: start: 20220128

REACTIONS (1)
  - Cardiac failure [Recovered/Resolved]

NARRATIVE: CASE EVENT DATE: 20220422
